FAERS Safety Report 9212880 (Version 1)
Quarter: 2013Q1

REPORT INFORMATION
  Report Type: Spontaneous
  Country: US (occurrence: None)
  Receive Date: 20120820
  Receipt Date: 20120820
  Transmission Date: 20140127
  Serious: No
  Sender: FDA-Public Use
  Company Number: 1000031529

PATIENT
  Sex: Female

DRUGS (2)
  1. VIIBRYD [Suspect]
     Indication: BIPOLAR DISORDER
     Dosage: 10 MG 1 IN 1 D
     Route: 048
     Dates: start: 20120614, end: 20120618
  2. LOVASTATIN [Concomitant]

REACTIONS (10)
  - Dysgeusia [None]
  - Headache [None]
  - Migraine [None]
  - Eye irritation [None]
  - Somnolence [None]
  - Confusional state [None]
  - Dizziness [None]
  - Speech disorder [None]
  - Paraesthesia [None]
  - Off label use [None]
